FAERS Safety Report 6377142-7 (Version None)
Quarter: 2009Q3

REPORT INFORMATION
  Report Type: 
  Country: None (occurrence: None)
  Receive Date: 20090925
  Receipt Date: 20090915
  Transmission Date: 20100115
  Serious: Yes (Hospitalization)
  Sender: FDA-Public Use
  Company Number: GB-PFIZER INC-2009268661

PATIENT
  Age: 72 Year

DRUGS (11)
  1. PREGABALIN [Suspect]
     Indication: BACK PAIN
     Dosage: 50 MG, 3X/DAY
     Route: 048
     Dates: start: 20090731, end: 20090801
  2. ADIZEM-XL [Concomitant]
  3. ACETYLSALICYLIC ACID [Concomitant]
  4. FENTANYL [Concomitant]
     Route: 002
  5. FENTANYL [Concomitant]
     Route: 062
  6. LACTULOSE [Concomitant]
  7. LANSOPRAZOLE [Concomitant]
  8. PARACETAMOL [Concomitant]
  9. PREDNISOLONE [Concomitant]
  10. QUININE SULPHATE [Concomitant]
  11. TEMAZEPAM [Concomitant]

REACTIONS (7)
  - ABDOMINAL DISTENSION [None]
  - ABDOMINAL PAIN UPPER [None]
  - CHEST PAIN [None]
  - MYOCARDIAL ISCHAEMIA [None]
  - NAUSEA [None]
  - PANCREATITIS [None]
  - VOMITING [None]
